FAERS Safety Report 13815042 (Version 1)
Quarter: 2017Q3

REPORT INFORMATION
  Report Type: Report from Study
  Country: AR (occurrence: AR)
  Receive Date: 20170731
  Receipt Date: 20170731
  Transmission Date: 20171127
  Serious: Yes (Death, Life-Threatening, Hospitalization)
  Sender: FDA-Public Use
  Company Number: AR-EMD SERONO-8130046

PATIENT
  Age: 48 Year
  Sex: Female
  Weight: 120 kg

DRUGS (4)
  1. DOMPERIDON                         /00498201/ [Concomitant]
     Indication: HIATUS HERNIA
     Route: 048
     Dates: start: 201510
  2. AVELUMAB [Suspect]
     Active Substance: AVELUMAB
     Indication: NON-SMALL CELL LUNG CANCER
     Route: 042
     Dates: start: 20160601, end: 20161202
  3. PANTOPRAZOLE [Concomitant]
     Active Substance: PANTOPRAZOLE
     Indication: HIATUS HERNIA
     Route: 048
     Dates: start: 201510
  4. DIOSMINE [Concomitant]
     Active Substance: DIOSMIN
     Indication: HIATUS HERNIA
     Route: 048
     Dates: start: 2010

REACTIONS (3)
  - Respiratory failure [Not Recovered/Not Resolved]
  - Hyperglycaemia [Fatal]
  - Disease progression [Fatal]

NARRATIVE: CASE EVENT DATE: 20161209
